FAERS Safety Report 18544981 (Version 2)
Quarter: 2020Q4

REPORT INFORMATION
  Report Type: Spontaneous
  Country: TH (occurrence: TH)
  Receive Date: 20201125
  Receipt Date: 20201202
  Transmission Date: 20210114
  Serious: Yes (Hospitalization, Other)
  Sender: FDA-Public Use
  Company Number: TH-PFIZER INC-2020460631

PATIENT
  Age: 12 Year
  Sex: Female

DRUGS (3)
  1. PREDNISOLONE. [Suspect]
     Active Substance: PREDNISOLONE
     Indication: ENCEPHALITIS AUTOIMMUNE
     Dosage: 1.2 MG/KG, 1X/DAY
     Dates: start: 20190827, end: 20191024
  2. METHYLPREDNISOLONE. [Suspect]
     Active Substance: METHYLPREDNISOLONE
     Indication: ENCEPHALITIS AUTOIMMUNE
     Dosage: 10 MG/KG, 1X/DAY
     Dates: start: 20190823, end: 20190826
  3. IMMUNOGLOBULINS NOS [Suspect]
     Active Substance: IMMUNE GLOBULIN NOS
     Indication: ENCEPHALITIS AUTOIMMUNE
     Dosage: UNK, 1X/DAY (2 G/KG DIVIDED INTO 5 D)
     Route: 042
     Dates: start: 20190828, end: 20190903

REACTIONS (6)
  - Lymphopenia [Recovered/Resolved]
  - T-lymphocyte count decreased [Recovered/Resolved]
  - Cytomegalovirus oesophagitis [Recovered/Resolved]
  - Hypogammaglobulinaemia [Recovered/Resolved]
  - Pseudomonas infection [Recovered/Resolved]
  - Cytomegalovirus enterocolitis [Recovered/Resolved]

NARRATIVE: CASE EVENT DATE: 2019
